FAERS Safety Report 14640580 (Version 1)
Quarter: 2018Q1

REPORT INFORMATION
  Report Type: Spontaneous
  Country: TR (occurrence: TR)
  Receive Date: 20180315
  Receipt Date: 20180315
  Transmission Date: 20180509
  Serious: Yes (Other)
  Sender: FDA-Public Use
  Company Number: TR-GLAXOSMITHKLINE-TR2018042451

PATIENT
  Age: 38 Year
  Sex: Male
  Weight: 72 kg

DRUGS (3)
  1. MUSCORIL [Suspect]
     Active Substance: THIOCOLCHICOSIDE
     Indication: PAIN
     Dosage: 1 DF, QD
     Route: 030
     Dates: start: 201703, end: 201709
  2. DIKLORON [Suspect]
     Active Substance: DICLOFENAC SODIUM
     Indication: PAIN
     Dosage: 1 DF, QD
     Route: 030
     Dates: start: 20170909
  3. VOLTAREN [Suspect]
     Active Substance: DICLOFENAC SODIUM
     Indication: PAIN
     Dosage: 1 DF, QD
     Route: 030
     Dates: start: 201703

REACTIONS (1)
  - Anaphylactic reaction [Recovered/Resolved]

NARRATIVE: CASE EVENT DATE: 20170909
